FAERS Safety Report 19999883 (Version 7)
Quarter: 2022Q1

REPORT INFORMATION
  Report Type: Report from Study
  Country: JP (occurrence: JP)
  Receive Date: 20211026
  Receipt Date: 20220301
  Transmission Date: 20220424
  Serious: Yes (Hospitalization)
  Sender: FDA-Public Use
  Company Number: JP-EISAI-202106453_BOLD-LF_C_1

PATIENT
  Age: 77 Year
  Sex: Male
  Weight: 174 kg

DRUGS (12)
  1. ERIBULIN [Suspect]
     Active Substance: ERIBULIN
     Indication: Oesophageal carcinoma
     Route: 041
     Dates: start: 20210831, end: 20210831
  2. NIVOLUMAB [Suspect]
     Active Substance: NIVOLUMAB
     Indication: Oesophageal carcinoma
     Route: 042
     Dates: start: 20210831, end: 20210831
  3. LANSOPRAZOLE [Concomitant]
     Active Substance: LANSOPRAZOLE
     Indication: Prophylaxis
     Route: 048
     Dates: start: 20210119
  4. MAGNESIUM OXIDE [Concomitant]
     Active Substance: MAGNESIUM OXIDE
     Indication: Constipation
     Route: 048
     Dates: start: 20210201
  5. SENNOSIDES [Concomitant]
     Active Substance: SENNOSIDES
     Indication: Constipation
     Route: 048
     Dates: start: 20210121
  6. ACETAMINOPHEN [Concomitant]
     Active Substance: ACETAMINOPHEN
     Indication: Cancer pain
     Route: 048
     Dates: start: 20210119
  7. TRAMADOL [Concomitant]
     Active Substance: TRAMADOL
     Indication: Cancer pain
     Route: 048
     Dates: start: 20210121
  8. OLANZAPINE [Concomitant]
     Active Substance: OLANZAPINE
     Indication: Decreased appetite
     Dates: start: 20210914
  9. PREGABALIN [Concomitant]
     Active Substance: PREGABALIN
     Indication: Neuropathy peripheral
     Dates: start: 20210914
  10. LOXOPROFEN [Concomitant]
     Active Substance: LOXOPROFEN
     Indication: Cancer pain
     Dates: start: 20210914
  11. SULFAMETHOXAZOLE\TRIMETHOPRIM [Concomitant]
     Active Substance: SULFAMETHOXAZOLE\TRIMETHOPRIM
     Indication: Pneumonia
     Dates: start: 20210922
  12. GLYCOSAMINOGLYCANS [Concomitant]
     Active Substance: GLYCOSAMINOGLYCANS
     Indication: Pigmentation disorder
     Dates: start: 20210929

REACTIONS (2)
  - Pneumonia [Recovering/Resolving]
  - Clostridium difficile infection [Recovering/Resolving]

NARRATIVE: CASE EVENT DATE: 20210919
